FAERS Safety Report 8448586-4 (Version None)
Quarter: 2012Q2

REPORT INFORMATION
  Report Type: 
  Country: None (occurrence: None)
  Receive Date: 20120619
  Receipt Date: 20120613
  Transmission Date: 20120825
  Serious: Yes (Hospitalization)
  Sender: FDA-Public Use
  Company Number: DE-ROCHE-1077966

PATIENT
  Sex: Male
  Weight: 76 kg

DRUGS (4)
  1. BENDAMUSTINE HYDROCHLORIDE [Suspect]
     Indication: MALIGNANT LYMPHOID NEOPLASM
     Dosage: DATE OF LAST DOSE RCEIVED ON 06/APR/2011
     Route: 042
     Dates: start: 20110405
  2. MABTHERA [Suspect]
     Indication: MALIGNANT LYMPHOID NEOPLASM
     Dosage: DATE OF LAST DOSE RECEIVED ON 03/MAY/2011
     Route: 042
     Dates: start: 20110404
  3. PANTOPRAZOLE [Concomitant]
  4. ALLOPURINOL [Concomitant]

REACTIONS (1)
  - SYNCOPE [None]
